FAERS Safety Report 6561083-6 (Version None)
Quarter: 2010Q1

REPORT INFORMATION
  Report Type: 
  Country: None (occurrence: None)
  Receive Date: 20100130
  Receipt Date: 20091026
  Transmission Date: 20100710
  Serious: No
  Sender: FDA-Public Use
  Company Number: US-ABBOTT-09P-163-0601182-00

PATIENT
  Sex: Female
  Weight: 82.628 kg

DRUGS (1)
  1. HUMIRA [Suspect]
     Indication: RHEUMATOID ARTHRITIS
     Route: 058
     Dates: start: 20090201

REACTIONS (7)
  - DYSPNOEA [None]
  - NASAL DRYNESS [None]
  - PAIN [None]
  - PARAESTHESIA [None]
  - RASH MACULAR [None]
  - SWELLING [None]
  - URTICARIA [None]
